FAERS Safety Report 14244498 (Version 4)
Quarter: 2018Q1

REPORT INFORMATION
  Report Type: Spontaneous
  Country: JP (occurrence: JP)
  Receive Date: 20171201
  Receipt Date: 20180209
  Transmission Date: 20180508
  Serious: Yes (Hospitalization)
  Sender: FDA-Public Use
  Company Number: JP-ABBVIE-17P-087-2175675-00

PATIENT
  Age: 30 Year
  Sex: Male

DRUGS (18)
  1. SERTRALINE HYDROCHLORIDE. [Interacting]
     Active Substance: SERTRALINE HYDROCHLORIDE
     Indication: DEPRESSION
     Route: 065
  2. DARUNAVIR [Interacting]
     Active Substance: DARUNAVIR
     Indication: PROPHYLAXIS AGAINST HIV INFECTION
  3. EMTRICITABINE / TENOFOVIR DISOPROXIL FUMARATE [Interacting]
     Active Substance: EMTRICITABINE\TENOFOVIR DISOPROXIL FUMARATE
     Indication: PRODUCT USED FOR UNKNOWN INDICATION
     Route: 065
     Dates: start: 201403
  4. ABACAVIR SULFATE. [Interacting]
     Active Substance: ABACAVIR SULFATE
     Indication: PROPHYLAXIS AGAINST HIV INFECTION
  5. TENOFOVIR [Suspect]
     Active Substance: TENOFOVIR
     Indication: PROPHYLAXIS AGAINST HIV INFECTION
     Route: 065
  6. NORVIR [Interacting]
     Active Substance: RITONAVIR
     Indication: PROPHYLAXIS AGAINST HIV INFECTION
  7. LAMIVUDINE. [Interacting]
     Active Substance: LAMIVUDINE
     Indication: PROPHYLAXIS AGAINST HIV INFECTION
     Route: 065
  8. MILNACIPRAN HYDROCHLORIDE. [Suspect]
     Active Substance: MILNACIPRAN HYDROCHLORIDE
     Indication: DEPRESSION
     Route: 065
  9. DARUNAVIR [Interacting]
     Active Substance: DARUNAVIR
     Indication: PROPHYLAXIS AGAINST HIV INFECTION
     Route: 065
  10. EMTRICITABINE / TENOFOVIR DISOPROXIL FUMARATE [Interacting]
     Active Substance: EMTRICITABINE\TENOFOVIR DISOPROXIL FUMARATE
     Indication: PROPHYLAXIS AGAINST HIV INFECTION
  11. ABACAVIR SULFATE. [Interacting]
     Active Substance: ABACAVIR SULFATE
     Indication: PROPHYLAXIS AGAINST HIV INFECTION
     Route: 065
  12. EMTRICITABINE [Suspect]
     Active Substance: EMTRICITABINE
     Indication: PROPHYLAXIS AGAINST HIV INFECTION
     Route: 065
  13. RALTEGRAVIR POTASSIUM [Concomitant]
     Active Substance: RALTEGRAVIR POTASSIUM
     Indication: PRODUCT USED FOR UNKNOWN INDICATION
     Route: 065
     Dates: start: 201403
  14. NORVIR [Suspect]
     Active Substance: RITONAVIR
     Indication: PROPHYLAXIS AGAINST HIV INFECTION
     Route: 048
     Dates: start: 20100510
  15. ATAZANAVIR. [Interacting]
     Active Substance: ATAZANAVIR SULFATE
     Indication: PROPHYLAXIS AGAINST HIV INFECTION
     Route: 065
  16. ATAZANAVIR. [Interacting]
     Active Substance: ATAZANAVIR SULFATE
     Indication: PROPHYLAXIS AGAINST HIV INFECTION
  17. SERTRALINE HYDROCHLORIDE. [Interacting]
     Active Substance: SERTRALINE HYDROCHLORIDE
     Route: 065
  18. LAMIVUDINE. [Interacting]
     Active Substance: LAMIVUDINE
     Indication: PROPHYLAXIS AGAINST HIV INFECTION

REACTIONS (7)
  - Depression [Unknown]
  - Suicide attempt [Recovered/Resolved]
  - Renal impairment [Unknown]
  - Drug interaction [Recovered/Resolved]
  - Overdose [Recovered/Resolved]
  - Suicidal ideation [Recovered/Resolved]
  - Sleep disorder [Recovered/Resolved]

NARRATIVE: CASE EVENT DATE: 20170118
